FAERS Safety Report 21615789 (Version 1)
Quarter: 2022Q4

REPORT INFORMATION
  Report Type: Spontaneous
  Country: US (occurrence: None)
  Receive Date: 20221117
  Receipt Date: 20221117
  Transmission Date: 20230113
  Serious: No
  Sender: FDA-Public Use
  Company Number: None

PATIENT
  Age: 55 Year
  Sex: Female
  Weight: 87.54 kg

DRUGS (11)
  1. IBRANCE [Suspect]
     Active Substance: PALBOCICLIB
     Indication: Malignant nipple neoplasm female
     Dosage: FREQUENCY : DAILY;?
     Route: 048
     Dates: start: 202011
  2. BUSPIRONE [Concomitant]
  3. CYMBALTA [Concomitant]
  4. IBUPROFEN [Concomitant]
     Active Substance: IBUPROFEN
  5. LETROZOLE [Concomitant]
  6. LEVOTHYROXINE [Concomitant]
  7. NORTRIPTYLINE [Concomitant]
  8. PANTOPRAZOLE [Concomitant]
  9. ROSUVASTATIN [Concomitant]
  10. VITAMIN B12 [Concomitant]
     Active Substance: CYANOCOBALAMIN
  11. VITAMIN D3 [Concomitant]

REACTIONS (2)
  - COVID-19 [None]
  - Therapy interrupted [None]

NARRATIVE: CASE EVENT DATE: 20221018
